FAERS Safety Report 9144198 (Version 2)
Quarter: 2013Q2

REPORT INFORMATION
  Report Type: Spontaneous
  Country: US (occurrence: US)
  Receive Date: 20130306
  Receipt Date: 20130519
  Transmission Date: 20140414
  Serious: No
  Sender: FDA-Public Use
  Company Number: US-009507513-1303USA000458

PATIENT
  Age: 60 Year
  Sex: Female
  Weight: 90.25 kg

DRUGS (5)
  1. DULERA [Suspect]
     Indication: ASTHMA
     Dosage: 200MCG/5MCG, BID
     Route: 055
     Dates: start: 20130213
  2. PREDNISOLONE [Concomitant]
     Indication: CORNEAL TRANSPLANT
     Route: 047
  3. ALBUTEROL [Concomitant]
  4. SINGULAIR [Concomitant]
     Route: 048
  5. CLARITIN [Concomitant]
     Route: 048

REACTIONS (1)
  - Hot flush [Recovered/Resolved]
